FAERS Safety Report 23574757 (Version 2)
Quarter: 2024Q1

REPORT INFORMATION
  Report Type: Spontaneous
  Country: GB (occurrence: GB)
  Receive Date: 20240228
  Receipt Date: 20240325
  Transmission Date: 20240410
  Serious: Yes (Other)
  Sender: FDA-Public Use
  Company Number: GB-MYLANLABS-2024M1016837

PATIENT
  Sex: Male

DRUGS (2)
  1. CLOZARIL [Suspect]
     Active Substance: CLOZAPINE
     Indication: Schizophrenia
     Dosage: DAILY
     Route: 048
     Dates: start: 20140908
  2. CLOZARIL [Suspect]
     Active Substance: CLOZAPINE
     Dosage: FOUR WEEKLY
     Route: 048

REACTIONS (2)
  - Lower respiratory tract infection [Unknown]
  - Off label use [Unknown]
